FAERS Safety Report 7632372-9 (Version None)
Quarter: 2011Q3

REPORT INFORMATION
  Report Type: 
  Country: None (occurrence: None)
  Receive Date: 20110725
  Receipt Date: 20110714
  Transmission Date: 20111222
  Serious: Yes (Hospitalization)
  Sender: FDA-Public Use
  Company Number: US-JNJFOC-20110706564

PATIENT
  Sex: Female
  Weight: 56.7 kg

DRUGS (3)
  1. ADDERALL 10 [Concomitant]
     Indication: OBSESSIVE-COMPULSIVE DISORDER
     Dates: start: 20080101
  2. REMICADE [Suspect]
     Indication: CROHN'S DISEASE
     Route: 042
     Dates: start: 20100801
  3. PENTASA [Concomitant]
     Indication: CROHN'S DISEASE
     Route: 048
     Dates: start: 20080101

REACTIONS (5)
  - DEPRESSION [None]
  - CROHN'S DISEASE [None]
  - SYNCOPE [None]
  - BLOOD POTASSIUM DECREASED [None]
  - BLOOD GLUCOSE INCREASED [None]
